FAERS Safety Report 8965793 (Version 1)
Quarter: 2012Q4

REPORT INFORMATION
  Report Type: 
  Country: ES (occurrence: ES)
  Receive Date: 20121214
  Receipt Date: 20121214
  Transmission Date: 20130627
  Serious: Yes (Hospitalization)
  Sender: FDA-Public Use
  Company Number: ES-ABBOTT-12P-144-0997131-00

PATIENT
  Age: 42 Year
  Sex: Female
  Weight: 54 kg

DRUGS (6)
  1. HUMIRA [Suspect]
     Indication: CROHN^S DISEASE
     Dosage: once induction dose
     Route: 058
     Dates: start: 20120917, end: 20120917
  2. HUMIRA [Suspect]
     Dosage: Once, induction dose
     Route: 058
     Dates: start: 20121001, end: 20121001
  3. HUMIRA [Suspect]
     Dosage: third dose:unknown if given
     Route: 058
     Dates: start: 20121018
  4. DACORTIN [Concomitant]
     Indication: CROHN^S DISEASE
     Dosage: variable
     Route: 048
     Dates: start: 20120901, end: 20121008
  5. NATECAL D [Concomitant]
     Indication: BONE DECALCIFICATION
     Dosage: CA 1500mg, 400 UI cholecalciferol
     Route: 048
     Dates: start: 20120901, end: 20121008
  6. NATECAL D [Concomitant]
     Indication: PROPHYLAXIS

REACTIONS (3)
  - Pyrexia [Recovered/Resolved]
  - Abdominal abscess [Recovered/Resolved]
  - Pain [Recovered/Resolved]
